FAERS Safety Report 5836960-1 (Version None)
Quarter: 2008Q3

REPORT INFORMATION
  Report Type: 
  Country: None (occurrence: None)
  Receive Date: 20080807
  Receipt Date: 20080725
  Transmission Date: 20090109
  Serious: Yes (Disabling)
  Sender: FDA-Public Use
  Company Number: FR-JNJFOC-20080107047

PATIENT
  Age: 53 Year
  Sex: Male

DRUGS (3)
  1. OFLOCET [Suspect]
     Indication: PROSTATITIS
     Route: 048
  2. BREXIN [Concomitant]
     Route: 048
  3. PREDNISONE TAB [Concomitant]

REACTIONS (4)
  - ARTHRALGIA [None]
  - FEMUR FRACTURE [None]
  - OSTEOARTHRITIS [None]
  - SYNOVITIS [None]
